FAERS Safety Report 8406994-1 (Version None)
Quarter: 2012Q2

REPORT INFORMATION
  Report Type: 
  Country: None (occurrence: None)
  Receive Date: 20120604
  Receipt Date: 20120531
  Transmission Date: 20120825
  Serious: Yes (Other)
  Sender: FDA-Public Use
  Company Number: US-PFIZER INC-2011040300

PATIENT
  Sex: Female

DRUGS (1)
  1. CHANTIX [Suspect]
     Dosage: UNK
     Route: 048

REACTIONS (22)
  - EXFOLIATIVE RASH [None]
  - EYE SWELLING [None]
  - LOCAL SWELLING [None]
  - ALOPECIA [None]
  - SWELLING [None]
  - SKIN DISORDER [None]
  - AURICULAR SWELLING [None]
  - SECRETION DISCHARGE [None]
  - SWELLING FACE [None]
  - PAIN [None]
  - SKIN EXFOLIATION [None]
  - SELF ESTEEM DECREASED [None]
  - HYPERSENSITIVITY [None]
  - AUTOIMMUNE DISORDER [None]
  - RASH PRURITIC [None]
  - PALPITATIONS [None]
  - WEIGHT INCREASED [None]
  - ACTIVITIES OF DAILY LIVING IMPAIRED [None]
  - SKIN DISCOLOURATION [None]
  - DEPRESSION [None]
  - LYMPHADENOPATHY [None]
  - BLISTER INFECTED [None]
